FAERS Safety Report 11036735 (Version 2)
Quarter: 2015Q2

REPORT INFORMATION
  Report Type: Spontaneous
  Country: FR (occurrence: FR)
  Receive Date: 20150416
  Receipt Date: 20150424
  Transmission Date: 20150821
  Serious: Yes (Hospitalization)
  Sender: FDA-Public Use
  Company Number: FR-AMGEN-FRASP2015036403

PATIENT
  Age: 62 Year
  Sex: Female

DRUGS (17)
  1. TOLEXINE                           /00055701/ [Concomitant]
     Dosage: UNK
  2. PECFENT [Concomitant]
     Active Substance: FENTANYL CITRATE
     Dosage: 100 MCG/SPRAYING, DAILY DOSE (ON DEMAND)
     Route: 045
  3. PAROXETINE ARROW [Concomitant]
     Active Substance: PAROXETINE\PAROXETINE HYDROCHLORIDE
     Dosage: 20 MG, (1 DF, 1 DAY 1-0-0)
     Route: 048
  4. OXALIPLATIN. [Concomitant]
     Active Substance: OXALIPLATIN
     Indication: COLON CANCER
     Dosage: UNK
     Dates: start: 201309
  5. FOLINIC ACID [Suspect]
     Active Substance: LEUCOVORIN
     Indication: COLON CANCER
  6. 5 FU [Suspect]
     Active Substance: FLUOROURACIL
     Indication: PERITONEAL CARCINOMA METASTATIC
     Dosage: UNK
     Route: 065
     Dates: start: 201309
  7. IRINOTECAN MYLAN [Suspect]
     Active Substance: IRINOTECAN
     Indication: PERITONEAL CARCINOMA METASTATIC
     Dosage: UNK
     Route: 065
     Dates: start: 201407, end: 20141230
  8. SOLUPRED                           /00016201/ [Concomitant]
     Active Substance: PREDNISOLONE
     Dosage: 20 MG (2-0-0), UNK
     Route: 048
  9. XARELTO [Concomitant]
     Active Substance: RIVAROXABAN
     Dosage: 20 MG, UNK
     Route: 048
     Dates: end: 201501
  10. FOLINIC ACID [Suspect]
     Active Substance: LEUCOVORIN
     Indication: PERITONEAL CARCINOMA METASTATIC
     Dosage: UNK
     Route: 065
     Dates: start: 201309
  11. SPASFON                            /00934601/ [Concomitant]
     Dosage: 3 DF, DAY, UNK
     Route: 048
  12. VECTIBIX [Suspect]
     Active Substance: PANITUMUMAB
     Indication: COLON CANCER
     Dosage: UNK
     Route: 065
  13. ACTISKENAN [Concomitant]
     Active Substance: MORPHINE SULFATE
     Dosage: 10 MG, (6 DF), UNK
     Route: 048
  14. ESOMEPRAZOLE [Concomitant]
     Active Substance: ESOMEPRAZOLE
     Dosage: 40 MG, (1 DAY, 0-0-1)
     Route: 048
  15. ALPRAZOLAM MYLAN [Concomitant]
     Active Substance: ALPRAZOLAM
     Dosage: SCORED TABLET (2 DF, DAY), 0.25 MG
     Route: 048
  16. 5 FU [Suspect]
     Active Substance: FLUOROURACIL
     Indication: COLON CANCER
  17. DUROGESIC [Concomitant]
     Active Substance: FENTANYL
     Dosage: 100 MCG/HOUR, 16.8 MG/42 CM2, TRANSDERMAL SYSTEM, 1 PATCH EVERY 3 DAYS, UNK
     Route: 062

REACTIONS (4)
  - Thrombocytopenia [Unknown]
  - Anaemia [Unknown]
  - Asthenia [Unknown]
  - Leukopenia [Unknown]

NARRATIVE: CASE EVENT DATE: 201501
